FAERS Safety Report 17842309 (Version 3)
Quarter: 2020Q2

REPORT INFORMATION
  Report Type: Report from Study
  Country: GB (occurrence: GB)
  Receive Date: 20200529
  Receipt Date: 20200615
  Transmission Date: 20200714
  Serious: Yes (Disabling)
  Sender: FDA-Public Use
  Company Number: GB-CELGENEUS-GBR-20200508658

PATIENT
  Age: 63 Year

DRUGS (2)
  1. LENALIDOMIDE [Suspect]
     Active Substance: LENALIDOMIDE
     Dosage: 5 MILLIGRAM
     Route: 048
  2. LENALIDOMIDE [Suspect]
     Active Substance: LENALIDOMIDE
     Indication: PLASMA CELL MYELOMA
     Dosage: 5 MILLIGRAM
     Route: 048
     Dates: end: 201910

REACTIONS (1)
  - Fistula [Not Recovered/Not Resolved]

NARRATIVE: CASE EVENT DATE: 201910
